FAERS Safety Report 6470461-5 (Version None)
Quarter: 2009Q4

REPORT INFORMATION
  Report Type: 
  Country: None (occurrence: None)
  Receive Date: 20091202
  Receipt Date: 20091202
  Transmission Date: 20100525
  Serious: Yes (Hospitalization)
  Sender: FDA-Public Use
  Company Number: None

PATIENT
  Age: 60 Year
  Sex: Female
  Weight: 68.0396 kg

DRUGS (2)
  1. IBUPROFEN [Suspect]
     Indication: ARTHRALGIA
     Dosage: 400MG EVERY HOUR PO
     Route: 048
     Dates: start: 20090901, end: 20091120
  2. IBUPROFEN [Suspect]
     Indication: BACK PAIN
     Dosage: 400MG EVERY HOUR PO
     Route: 048
     Dates: start: 20090901, end: 20091120

REACTIONS (2)
  - ABDOMINAL DISCOMFORT [None]
  - RECTAL HAEMORRHAGE [None]
